FAERS Safety Report 19147804 (Version 2)
Quarter: 2021Q2

REPORT INFORMATION
  Report Type: Spontaneous
  Country: NL (occurrence: NL)
  Receive Date: 20210416
  Receipt Date: 20210522
  Transmission Date: 20210717
  Serious: Yes (Other)
  Sender: FDA-Public Use
  Company Number: NVSC2021NL075943

PATIENT
  Sex: Female

DRUGS (1)
  1. METOPROLOL RETARD ? 1 A PHARMA [Suspect]
     Active Substance: METOPROLOL TARTRATE
     Indication: PRODUCT USED FOR UNKNOWN INDICATION
     Dosage: 1 DF, 90MUT NL
     Route: 065

REACTIONS (4)
  - Haematemesis [Unknown]
  - Hyperhidrosis [Unknown]
  - Heart valve incompetence [Unknown]
  - Nausea [Unknown]
